FAERS Safety Report 9863871 (Version 1)
Quarter: 2014Q1

REPORT INFORMATION
  Report Type: Spontaneous
  Country: AU (occurrence: AU)
  Receive Date: 20140203
  Receipt Date: 20140203
  Transmission Date: 20141002
  Serious: Yes (Other)
  Sender: FDA-Public Use
  Company Number: AU-GLAXOSMITHKLINE-B0958343A

PATIENT
  Age: 59 Year
  Sex: Female

DRUGS (1)
  1. ZOVIRAX [Suspect]
     Indication: OPHTHALMIC HERPES SIMPLEX
     Route: 047
     Dates: start: 20131227, end: 20131227

REACTIONS (2)
  - Eyelid oedema [Recovered/Resolved]
  - Eyelid pain [Recovered/Resolved]
